FAERS Safety Report 18117734 (Version 2)
Quarter: 2020Q3

REPORT INFORMATION
  Report Type: Spontaneous
  Country: US (occurrence: US)
  Receive Date: 20200806
  Receipt Date: 20200814
  Transmission Date: 20201103
  Serious: Yes (Hospitalization, Other)
  Sender: FDA-Public Use
  Company Number: US-TEVA-2020-US-1810039

PATIENT
  Age: 76 Year
  Sex: Male

DRUGS (3)
  1. NORMAL SALINE [Concomitant]
     Active Substance: SODIUM CHLORIDE
     Indication: VEHICLE SOLUTION USE
     Route: 041
  2. LEUPROLIDE [Concomitant]
     Active Substance: LEUPROLIDE
     Indication: HORMONE-REFRACTORY PROSTATE CANCER
     Route: 065
  3. MITOXANTRONE [Suspect]
     Active Substance: MITOXANTRONE HYDROCHLORIDE
     Indication: HORMONE-REFRACTORY PROSTATE CANCER
     Dosage: DILUTED IN SODIUM CHLORIDE
     Route: 041

REACTIONS (12)
  - Eschar [Recovered/Resolved]
  - Fat necrosis [Recovered/Resolved]
  - Serratia infection [Recovered/Resolved]
  - Administration site extravasation [Recovered/Resolved]
  - Oedema [Recovered/Resolved]
  - Skin induration [Recovered/Resolved]
  - Necrotising fasciitis [Recovered/Resolved]
  - Enterobacter infection [Recovered/Resolved]
  - Pain [Recovered/Resolved]
  - Blister [Recovered/Resolved]
  - Skin discolouration [Recovered/Resolved]
  - Skin burning sensation [Recovered/Resolved]
